FAERS Safety Report 9458717 (Version 2)
Quarter: 2013Q3

REPORT INFORMATION
  Report Type: Spontaneous
  Country: US (occurrence: US)
  Receive Date: 20130814
  Receipt Date: 20130911
  Transmission Date: 20140515
  Serious: No
  Sender: FDA-Public Use
  Company Number: US-009507513-1308USA006299

PATIENT
  Age: 59 Year
  Sex: Male

DRUGS (4)
  1. MIRALAX [Suspect]
     Indication: CONSTIPATION
     Dosage: 17 G, QD
     Route: 048
     Dates: start: 20130807, end: 20130815
  2. MIRALAX [Suspect]
     Indication: MEDICAL OBSERVATION
  3. BACLOFEN [Concomitant]
     Indication: CEREBROVASCULAR ACCIDENT
     Dosage: UNK, UNKNOWN
  4. KEPPRA [Concomitant]
     Indication: CEREBROVASCULAR ACCIDENT
     Dosage: UNK, UNKNOWN

REACTIONS (1)
  - Drug ineffective [Unknown]
